FAERS Safety Report 10166508 (Version 1)
Quarter: 2014Q2

REPORT INFORMATION
  Report Type: Spontaneous
  Country: US (occurrence: None)
  Receive Date: 20140509
  Receipt Date: 20140509
  Transmission Date: 20141212
  Serious: Yes (Other)
  Sender: FDA-Public Use
  Company Number: None

PATIENT
  Age: 56 Year
  Sex: Female
  Weight: 88.91 kg

DRUGS (2)
  1. DULOXETINE [Suspect]
     Indication: FIBROMYALGIA
  2. DULOXETINE [Suspect]
     Indication: DEPRESSION

REACTIONS (3)
  - Product substitution issue [None]
  - Myalgia [None]
  - Feeling abnormal [None]
